FAERS Safety Report 22263461 (Version 11)
Quarter: 2024Q4

REPORT INFORMATION
  Report Type: Report from Study
  Country: US (occurrence: US)
  Receive Date: 20230428
  Receipt Date: 20241113
  Transmission Date: 20250114
  Serious: Yes (Other)
  Sender: NOVARTIS
  Company Number: US-002147023-NVSC2023US093304

PATIENT
  Age: 74 Year
  Sex: Female

DRUGS (3)
  1. LEQVIO [Suspect]
     Active Substance: INCLISIRAN SODIUM
     Indication: Low density lipoprotein increased
     Dosage: UNK
     Route: 065
     Dates: start: 20221001
  2. LEQVIO [Suspect]
     Active Substance: INCLISIRAN SODIUM
     Dosage: UNK
     Route: 065
     Dates: start: 202210
  3. LOPRESSOR [Suspect]
     Active Substance: METOPROLOL TARTRATE
     Indication: Product used for unknown indication
     Dosage: UNK
     Route: 065

REACTIONS (10)
  - Atrial fibrillation [Unknown]
  - Sciatica [Unknown]
  - Back pain [Recovering/Resolving]
  - Pain in extremity [Recovered/Resolved]
  - Cataract [Unknown]
  - Migraine [Unknown]
  - Pancreatic disorder [Unknown]
  - Mobility decreased [Not Recovered/Not Resolved]
  - Feeling abnormal [Recovering/Resolving]
  - Fall [Unknown]

NARRATIVE: CASE EVENT DATE: 20230901
